FAERS Safety Report 7767803-7 (Version None)
Quarter: 2011Q3

REPORT INFORMATION
  Report Type: 
  Country: None (occurrence: None)
  Receive Date: 20110922
  Receipt Date: 20110608
  Transmission Date: 20111222
  Serious: No
  Sender: FDA-Public Use
  Company Number: US-ASTRAZENECA-2011SE34949

PATIENT
  Age: 57 Year
  Sex: Female
  Weight: 52.6 kg

DRUGS (8)
  1. OMEPRAZOLE [Concomitant]
  2. CARBABENZINE [Concomitant]
  3. XANAX [Concomitant]
  4. SOMA [Concomitant]
  5. SEROQUEL XR [Suspect]
     Indication: BIPOLAR DISORDER
     Route: 048
     Dates: start: 20080101
  6. OXYCONTIN [Concomitant]
  7. CELEXA [Concomitant]
  8. LORTAB [Concomitant]

REACTIONS (7)
  - ANXIETY [None]
  - HEAT ILLNESS [None]
  - PHOBIC AVOIDANCE [None]
  - DRUG DOSE OMISSION [None]
  - INSOMNIA [None]
  - TACHYPHRENIA [None]
  - NIGHTMARE [None]
